FAERS Safety Report 10210861 (Version 1)
Quarter: 2014Q2

REPORT INFORMATION
  Report Type: Spontaneous
  Country: US (occurrence: None)
  Receive Date: 20140530
  Receipt Date: 20140530
  Transmission Date: 20141212
  Serious: Yes (Death, Life-Threatening, Hospitalization)
  Sender: FDA-Public Use
  Company Number: None

PATIENT
  Age: 99 Year
  Sex: Female
  Weight: 50.8 kg

DRUGS (2)
  1. LEVAQUIN [Suspect]
     Indication: ANIMAL SCRATCH
     Dosage: 2 ONCE DAILY TAKEN BY MOUTH
  2. LEVAQUIN [Suspect]
     Indication: INFECTION
     Dosage: 2 ONCE DAILY TAKEN BY MOUTH

REACTIONS (6)
  - Chills [None]
  - Pain in extremity [None]
  - Pain in jaw [None]
  - Atrial fibrillation [None]
  - Heart rate irregular [None]
  - Procedural complication [None]
